FAERS Safety Report 20891195 (Version 2)
Quarter: 2023Q1

REPORT INFORMATION
  Report Type: Spontaneous
  Country: HU (occurrence: HU)
  Receive Date: 20220530
  Receipt Date: 20230203
  Transmission Date: 20230418
  Serious: Yes (Other)
  Sender: FDA-Public Use
  Company Number: HU-002147023-NVSC2022HU110494

PATIENT
  Age: 75 Year
  Sex: Female

DRUGS (17)
  1. DOXORUBICIN HYDROCHLORIDE [Suspect]
     Active Substance: DOXORUBICIN HYDROCHLORIDE
     Indication: Adenocarcinoma
     Dosage: UNK
     Route: 065
     Dates: start: 2007, end: 200802
  2. ZOLEDRONIC ACID [Suspect]
     Active Substance: ZOLEDRONIC ACID
     Indication: Adenocarcinoma
     Dosage: 4 MG, MONTHLY
     Route: 065
     Dates: start: 201504
  3. CYCLOPHOSPHAMIDE [Suspect]
     Active Substance: CYCLOPHOSPHAMIDE
     Indication: Adenocarcinoma
     Dosage: UNK
     Route: 065
     Dates: start: 2007, end: 200802
  4. FULVESTRANT [Suspect]
     Active Substance: FULVESTRANT
     Indication: Breast cancer
     Dosage: UNK
     Route: 065
     Dates: start: 20201125
  5. LETROZOLE [Suspect]
     Active Substance: LETROZOLE
     Indication: Adenocarcinoma
     Dosage: UNK
     Route: 065
     Dates: start: 2008, end: 201303
  6. PACLITAXEL [Suspect]
     Active Substance: PACLITAXEL
     Indication: Breast cancer
     Dosage: UNK
     Route: 065
     Dates: start: 202009
  7. KISQALI [Suspect]
     Active Substance: RIBOCICLIB
     Indication: Breast cancer
     Dosage: 600 MG
     Route: 065
     Dates: start: 20201125
  8. KISQALI [Suspect]
     Active Substance: RIBOCICLIB
     Dosage: 400 MG
     Route: 065
     Dates: start: 202012
  9. DOCETAXEL [Suspect]
     Active Substance: DOCETAXEL
     Indication: Adenocarcinoma
     Dosage: UNK
     Route: 065
     Dates: start: 2007, end: 200802
  10. TRAMADOL [Suspect]
     Active Substance: TRAMADOL
     Indication: Pain
     Dosage: UNK
     Route: 065
     Dates: start: 201504
  11. DENOSUMAB [Suspect]
     Active Substance: DENOSUMAB
     Indication: Breast cancer
     Dosage: UNK
     Route: 065
     Dates: start: 20201110
  12. ANASTROZOLE [Concomitant]
     Active Substance: ANASTROZOLE
     Indication: Adenocarcinoma
     Dosage: 1 MG, DAILY
     Route: 065
     Dates: start: 201504
  13. TRASTUZUMAB [Concomitant]
     Active Substance: TRASTUZUMAB
     Indication: Adenocarcinoma
     Dosage: UNK
     Route: 065
  14. XGEVA [Concomitant]
     Active Substance: DENOSUMAB
     Indication: Breast cancer
     Route: 065
     Dates: start: 202012
  15. XGEVA [Concomitant]
     Active Substance: DENOSUMAB
     Dosage: UNK
     Route: 065
  16. PERJETA [Concomitant]
     Active Substance: PERTUZUMAB
     Indication: Breast cancer
     Dosage: UNK
     Route: 065
     Dates: start: 202009
  17. HERCEPTIN [Concomitant]
     Active Substance: TRASTUZUMAB
     Indication: Breast cancer
     Dosage: UNK
     Route: 065

REACTIONS (9)
  - Osteonecrosis [Unknown]
  - Osteomyelitis [Unknown]
  - Electrocardiogram QT prolonged [Recovered/Resolved]
  - Blood lactate dehydrogenase increased [Unknown]
  - Weight increased [Unknown]
  - Back pain [Recovering/Resolving]
  - Blood alkaline phosphatase increased [Unknown]
  - Anaemia [Unknown]
  - Neoplasm progression [Recovered/Resolved]

NARRATIVE: CASE EVENT DATE: 20150201
